APPROVED DRUG PRODUCT: MECLOFENAMATE SODIUM
Active Ingredient: MECLOFENAMATE SODIUM
Strength: EQ 50MG BASE
Dosage Form/Route: CAPSULE;ORAL
Application: A071640 | Product #001
Applicant: WATSON LABORATORIES INC
Approved: Aug 11, 1987 | RLD: No | RS: No | Type: DISCN